FAERS Safety Report 5570288-2 (Version None)
Quarter: 2007Q4

REPORT INFORMATION
  Report Type: 
  Country: None (occurrence: None)
  Receive Date: 20071221
  Receipt Date: 20071213
  Transmission Date: 20080405
  Serious: Yes (Life-Threatening)
  Sender: FDA-Public Use
  Company Number: ES-JNJFOC-20071204452

PATIENT
  Age: 76 Year
  Sex: Male

DRUGS (5)
  1. REOPRO [Suspect]
     Indication: CORONARY ANGIOPLASTY
     Route: 042
  2. PANTOPRAZOLE SODIUM [Concomitant]
  3. INYESPRIN [Concomitant]
  4. HEPARIN SODIUM [Concomitant]
     Indication: CORONARY ANGIOPLASTY
  5. ACETYLCYSTEINE [Concomitant]

REACTIONS (2)
  - CORONARY ARTERY THROMBOSIS [None]
  - THROMBOCYTOPENIA [None]
